FAERS Safety Report 9285552 (Version 2)
Quarter: 2014Q2

REPORT INFORMATION
  Report Type: Spontaneous
  Country: US (occurrence: US)
  Receive Date: 20130513
  Receipt Date: 20140402
  Transmission Date: 20141212
  Serious: No
  Sender: FDA-Public Use
  Company Number: US-PFIZER INC-2013143090

PATIENT
  Sex: Male

DRUGS (1)
  1. LEVOXYL [Suspect]
     Dosage: UNK

REACTIONS (13)
  - Blood pressure decreased [Unknown]
  - Body temperature decreased [Unknown]
  - Thyroid function test abnormal [Unknown]
  - Disturbance in attention [Unknown]
  - Amnesia [Unknown]
  - Confusional state [Unknown]
  - Anxiety [Unknown]
  - Vision blurred [Unknown]
  - Rash [Unknown]
  - Chills [Unknown]
  - Feeling abnormal [Unknown]
  - Malaise [Unknown]
  - Product quality issue [Unknown]
